FAERS Safety Report 7425644-4 (Version None)
Quarter: 2011Q2

REPORT INFORMATION
  Report Type: 
  Country: None (occurrence: None)
  Receive Date: 20110412
  Receipt Date: 20110331
  Transmission Date: 20111010
  Serious: Yes (Hospitalization)
  Sender: FDA-Public Use
  Company Number: 1000019827

PATIENT
  Age: 83 Year
  Sex: Female
  Weight: 75 kg

DRUGS (6)
  1. MEMANTINE [Suspect]
     Indication: DEMENTIA ALZHEIMER'S TYPE
     Dosage: 5 MG (5 MG,1 IN 1 D), ORAL; 20 MG (20 MG,1 IN 1 D), ORAL
     Route: 048
     Dates: start: 20100413
  2. MEMANTINE [Suspect]
     Indication: DEMENTIA ALZHEIMER'S TYPE
     Dosage: 5 MG (5 MG,1 IN 1 D), ORAL; 20 MG (20 MG,1 IN 1 D), ORAL
     Route: 048
     Dates: end: 20100802
  3. NORVASC [Concomitant]
  4. ASS (ACETYLSALICYLIC ACID) (ACETYLSALICYLIC ACID) [Concomitant]
  5. OMEP (OMEPRAZOLE) (OMEPRAZOLE) [Concomitant]
  6. METOPROLOL SUCCINATE [Concomitant]

REACTIONS (6)
  - ILLUSION [None]
  - SPEECH DISORDER [None]
  - MEMORY IMPAIRMENT [None]
  - NEUROLOGICAL EXAMINATION ABNORMAL [None]
  - AGGRESSION [None]
  - DISTURBANCE IN ATTENTION [None]
